FAERS Safety Report 5485168-0 (Version None)
Quarter: 2007Q4

REPORT INFORMATION
  Report Type: 
  Country: None (occurrence: None)
  Receive Date: 20071015
  Receipt Date: 20071010
  Transmission Date: 20080405
  Serious: Yes (Life-Threatening)
  Sender: FDA-Public Use
  Company Number: PHBS2007BR16852

PATIENT
  Sex: Female

DRUGS (2)
  1. PARLODEL [Suspect]
     Dosage: 2.5 MG, QD
     Route: 048
  2. PARLODEL [Suspect]
     Dosage: 5 MG, QD
     Route: 048

REACTIONS (2)
  - FEELING ABNORMAL [None]
  - NAUSEA [None]
